FAERS Safety Report 8486651-6 (Version None)
Quarter: 2012Q3

REPORT INFORMATION
  Report Type: 
  Country: None (occurrence: None)
  Receive Date: 20120703
  Receipt Date: 20120627
  Transmission Date: 20120928
  Serious: Yes (Hospitalization, Other)
  Sender: FDA-Public Use
  Company Number: CA-ROCHE-GNE261591

PATIENT
  Sex: Male
  Weight: 80.086 kg

DRUGS (1)
  1. XOLAIR [Suspect]
     Indication: ASTHMA
     Dosage: 300 UNK, UNK
     Route: 058
     Dates: start: 20061126

REACTIONS (7)
  - ARRHYTHMIA [None]
  - SNEEZING [None]
  - HYPERSENSITIVITY [None]
  - DYSPNOEA [None]
  - ATRIAL FIBRILLATION [None]
  - EYE PRURITUS [None]
  - RHINORRHOEA [None]
